FAERS Safety Report 12015025 (Version 1)
Quarter: 2016Q1

REPORT INFORMATION
  Report Type: Spontaneous
  Country: US (occurrence: US)
  Receive Date: 20160205
  Receipt Date: 20160205
  Transmission Date: 20160526
  Serious: No
  Sender: FDA-Public Use
  Company Number: US-AMGEN-USASP2015016538

PATIENT

DRUGS (6)
  1. DEXRAZOXANE. [Concomitant]
     Active Substance: DEXRAZOXANE
     Indication: BREAST CANCER METASTATIC
     Dosage: UNK
  2. EMEND [Concomitant]
     Active Substance: APREPITANT
     Indication: BREAST CANCER METASTATIC
     Dosage: UNK
  3. NEULASTA [Suspect]
     Active Substance: PEGFILGRASTIM
     Indication: PRODUCT USED FOR UNKNOWN INDICATION
     Dosage: UNK
     Route: 065
  4. ADRIAMYCIN [Concomitant]
     Active Substance: DOXORUBICIN HYDROCHLORIDE
     Indication: BREAST CANCER METASTATIC
     Dosage: UNK
  5. ALOXI [Concomitant]
     Active Substance: PALONOSETRON HYDROCHLORIDE
     Indication: BREAST CANCER METASTATIC
     Dosage: UNK
  6. DECADRON [Concomitant]
     Active Substance: DEXAMETHASONE
     Indication: BREAST CANCER METASTATIC
     Dosage: UNK

REACTIONS (8)
  - Mouth ulceration [Unknown]
  - White blood cell count decreased [Unknown]
  - Fatigue [Unknown]
  - Decreased appetite [Unknown]
  - Influenza [Unknown]
  - Alopecia [Unknown]
  - Constipation [Unknown]
  - Diarrhoea [Unknown]
